FAERS Safety Report 7580395-0 (Version None)
Quarter: 2011Q2

REPORT INFORMATION
  Report Type: 
  Country: None (occurrence: None)
  Receive Date: 20110629
  Receipt Date: 20110623
  Transmission Date: 20111010
  Serious: Yes (Death)
  Sender: FDA-Public Use
  Company Number: US-ROCHE-785746

PATIENT

DRUGS (1)
  1. BONIVA [Suspect]
     Route: 065

REACTIONS (1)
  - DEATH [None]
